FAERS Safety Report 12574507 (Version 1)
Quarter: 2016Q3

REPORT INFORMATION
  Report Type: Spontaneous
  Country: JP (occurrence: JP)
  Receive Date: 20160720
  Receipt Date: 20160720
  Transmission Date: 20161109
  Serious: Yes (Hospitalization)
  Sender: FDA-Public Use
  Company Number: JP-GLAXOSMITHKLINE-JP2016JPN083124

PATIENT
  Age: 29 Year
  Sex: Female

DRUGS (8)
  1. HALCION [Concomitant]
     Active Substance: TRIAZOLAM
     Dosage: UNK
  2. LAMICTAL [Suspect]
     Active Substance: LAMOTRIGINE
     Dosage: 25 MG, QD
     Route: 048
     Dates: start: 20160511, end: 20160524
  3. LAMICTAL [Suspect]
     Active Substance: LAMOTRIGINE
     Dosage: 25 MG, BID
     Route: 048
     Dates: start: 20160525, end: 20160605
  4. MYSLEE [Concomitant]
     Active Substance: ZOLPIDEM TARTRATE
     Dosage: UNK
  5. BELSOMRA [Concomitant]
     Active Substance: SUVOREXANT
     Dosage: 0.5 UNK, UNK
  6. AMOXAN [Concomitant]
     Active Substance: AMOXAPINE
     Dosage: UNK
  7. NEUROTROPIN (EXTRACT FROM CUTANEOUS TISSUE OF RABBIT INOCULATED WITH V [Concomitant]
     Dosage: UNK
  8. MAGLAX [Concomitant]
     Active Substance: MAGNESIUM OXIDE
     Dosage: UNK

REACTIONS (2)
  - Rash pruritic [Recovered/Resolved]
  - Skin warm [Recovered/Resolved]

NARRATIVE: CASE EVENT DATE: 20160605
